FAERS Safety Report 9512491 (Version 1)
Quarter: 2013Q3

REPORT INFORMATION
  Report Type: Spontaneous
  Country: DK (occurrence: DK)
  Receive Date: 20130910
  Receipt Date: 20130910
  Transmission Date: 20140515
  Serious: Yes (Other)
  Sender: FDA-Public Use
  Company Number: DK-PFIZER INC-2013259374

PATIENT
  Age: 22 Year
  Sex: Female

DRUGS (6)
  1. LYRICA [Suspect]
     Dosage: 75 MG, 1X/DAY
     Dates: start: 20130820, end: 2013
  2. LYRICA [Suspect]
     Dosage: 150 MG
     Dates: start: 2013
  3. TRUXAL [Suspect]
     Dosage: 25 MG, AS NEEDED, MAX TWO TIMES DAILY
  4. LAMOTRIGINE [Concomitant]
     Dosage: 25 MG, UNK
  5. ABILIFY [Concomitant]
     Dosage: 40 MG, UNK
  6. FEMINIL MITE [Concomitant]

REACTIONS (1)
  - Vaginal haemorrhage [Unknown]
